FAERS Safety Report 10469421 (Version 1)
Quarter: 2014Q3

REPORT INFORMATION
  Report Type: Spontaneous
  Country: US (occurrence: None)
  Receive Date: 20140919
  Receipt Date: 20140919
  Transmission Date: 20150326
  Serious: Yes (Disabling, Other)
  Sender: FDA-Public Use
  Company Number: 1210-552

PATIENT
  Age: 80 Year
  Sex: Female

DRUGS (20)
  1. RED RICE YEAST (MONASCUS PURPUREUS) [Concomitant]
  2. EYLEA [Suspect]
     Active Substance: AFLIBERCEPT
     Indication: AGE-RELATED MACULAR DEGENERATION
     Dosage: AS NECESSARY
     Route: 031
     Dates: start: 20120919, end: 20120919
  3. FUROSEMIDE (FUROSEMIDE) [Concomitant]
     Active Substance: FUROSEMIDE
  4. PRESERVISION (ASCORBIC ACID, BETACAROTENE, CUPRIC OXIDE, TOCOPHERYL ACETATE, ZINC OXIDE) [Concomitant]
  5. ESTER-C /00008001/ (ASCORBIC ACID) [Concomitant]
  6. KRILL OIL (FISH OIL) [Concomitant]
  7. Q-GEL (UBIDECARENONE) [Concomitant]
  8. CALCIUM [Concomitant]
     Active Substance: CALCIUM
  9. LECITHIN [Concomitant]
     Active Substance: LECITHIN
  10. CRESTOR [Concomitant]
     Active Substance: ROSUVASTATIN CALCIUM
  11. BUFFERIN /00002701/ (ACETYLSALICYLIC ACID) [Concomitant]
  12. B-100 /02182801/ (BIOTIN, CALCIUM PANTOTHENATE, CYANOCOBALAMIN, FOLIC ACID, NICOTINAMIDE, PYRIDOXINE HYDROCHLORIDE, RIBOFLAVIN, THIAMINE HYDROCHLORIDE) [Concomitant]
  13. MELOXICAM (MELOXICAM) [Concomitant]
     Active Substance: MELOXICAM
  14. VITAMIN D3 [Concomitant]
     Active Substance: CHOLECALCIFEROL
  15. OFLOXACIN (OFLOXACIN) [Concomitant]
  16. BENAZEPRIL [Concomitant]
     Active Substance: BENAZEPRIL\BENAZEPRIL HYDROCHLORIDE
  17. MSM [Concomitant]
     Active Substance: DIMETHYL SULFONE
  18. SYNTHROID [Concomitant]
     Active Substance: LEVOTHYROXINE SODIUM
  19. NEURONTIN [Concomitant]
     Active Substance: GABAPENTIN
  20. MYSOLINE [Concomitant]
     Active Substance: PRIMIDONE

REACTIONS (3)
  - Vitrectomy [None]
  - Non-infectious endophthalmitis [None]
  - Blindness transient [None]

NARRATIVE: CASE EVENT DATE: 20120919
